FAERS Safety Report 5470863-X (Version None)
Quarter: 2007Q3

REPORT INFORMATION
  Report Type: 
  Country: None (occurrence: None)
  Receive Date: 20070928
  Receipt Date: 20070919
  Transmission Date: 20080115
  Serious: Yes (Other)
  Sender: FDA-Public Use
  Company Number: BR-AVENTIS-200718695GDDC

PATIENT
  Age: 10 Year
  Sex: Female

DRUGS (1)
  1. FLAGYL [Suspect]
     Dosage: DOSE: UNK

REACTIONS (5)
  - HEADACHE [None]
  - PHARYNGOLARYNGEAL PAIN [None]
  - PYREXIA [None]
  - SYNCOPE [None]
  - VOMITING [None]
